FAERS Safety Report 18771850 (Version 2)
Quarter: 2022Q1

REPORT INFORMATION
  Report Type: Spontaneous
  Country: US (occurrence: US)
  Receive Date: 20210122
  Receipt Date: 20220127
  Transmission Date: 20220423
  Serious: No
  Sender: FDA-Public Use
  Company Number: US-PCCINC-2020-PEL-000500

PATIENT

DRUGS (2)
  1. GABLOFEN [Suspect]
     Active Substance: BACLOFEN
     Indication: Spinal cord injury
     Dosage: 1100 MICROGRAM/DAY
     Route: 037
  2. GABLOFEN [Suspect]
     Active Substance: BACLOFEN
     Indication: Muscle spasticity
     Dosage: 949 MICROGRAM/DAY
     Route: 037

REACTIONS (10)
  - Fall [Unknown]
  - Implant site pain [Not Recovered/Not Resolved]
  - Medical device site irritation [Recovered/Resolved]
  - Muscle spasms [Recovered/Resolved]
  - Musculoskeletal stiffness [Recovered/Resolved]
  - Hypertonia [Recovered/Resolved]
  - Muscle spasticity [Recovered/Resolved]
  - Drug ineffective [Recovered/Resolved]
  - Device leakage [Recovered/Resolved]
  - Device connection issue [Recovered/Resolved]
